FAERS Safety Report 19474640 (Version 14)
Quarter: 2022Q4

REPORT INFORMATION
  Report Type: Spontaneous
  Country: US (occurrence: US)
  Receive Date: 20210629
  Receipt Date: 20221227
  Transmission Date: 20230113
  Serious: Yes (Other)
  Sender: FDA-Public Use
  Company Number: US-PFIZER INC-2021725873

PATIENT
  Age: 72 Year
  Sex: Female
  Weight: 81.64 kg

DRUGS (2)
  1. XELJANZ [Suspect]
     Active Substance: TOFACITINIB CITRATE
     Indication: Rheumatoid arthritis
     Dosage: 5 MG, 2X/DAY
  2. XELJANZ [Suspect]
     Active Substance: TOFACITINIB CITRATE
     Dosage: 5 MG, 1X/DAY

REACTIONS (13)
  - Thrombosis [Unknown]
  - Helicobacter infection [Unknown]
  - Trismus [Unknown]
  - Thyroid pain [Unknown]
  - Fatigue [Unknown]
  - Bronchitis [Unknown]
  - Musculoskeletal discomfort [Unknown]
  - Blood cholesterol increased [Not Recovered/Not Resolved]
  - Pain [Unknown]
  - Pain in extremity [Unknown]
  - COVID-19 [Unknown]
  - Confusional state [Unknown]
  - Weight increased [Unknown]
